FAERS Safety Report 6627898-0 (Version None)
Quarter: 2010Q1

REPORT INFORMATION
  Report Type: 
  Country: None (occurrence: None)
  Receive Date: 20100311
  Receipt Date: 20090304
  Transmission Date: 20100710
  Serious: No
  Sender: FDA-Public Use
  Company Number: A0771608A

PATIENT
  Age: 66 Year
  Sex: Female

DRUGS (2)
  1. NICOTINE POLACRILEX [Suspect]
     Indication: SMOKING CESSATION THERAPY
     Dosage: 1LOZ PER DAY
     Route: 002
     Dates: start: 20090118
  2. FLEXERIL [Concomitant]

REACTIONS (5)
  - DYSPEPSIA [None]
  - HYPERTENSION [None]
  - KIDNEY INFECTION [None]
  - NICOTINE DEPENDENCE [None]
  - TENSION [None]
